FAERS Safety Report 25478470 (Version 1)
Quarter: 2025Q2

REPORT INFORMATION
  Report Type: Spontaneous
  Country: US (occurrence: US)
  Receive Date: 20250625
  Receipt Date: 20250625
  Transmission Date: 20250716
  Serious: No
  Sender: Harrow Health
  Company Number: US-HARROW-HAR-2025-US-00143

PATIENT
  Age: 81 Year
  Sex: Female

DRUGS (1)
  1. VEVYE [Suspect]
     Active Substance: CYCLOSPORINE
     Route: 047
     Dates: start: 20250329, end: 20250410

REACTIONS (3)
  - Ocular discomfort [Unknown]
  - Eye irritation [Unknown]
  - Abnormal sensation in eye [Unknown]

NARRATIVE: CASE EVENT DATE: 20250401
